FAERS Safety Report 6986583-6 (Version None)
Quarter: 2010Q3

REPORT INFORMATION
  Report Type: 
  Country: None (occurrence: None)
  Receive Date: 20100915
  Receipt Date: 20090722
  Transmission Date: 20110219
  Serious: No
  Sender: FDA-Public Use
  Company Number: US-WYE-H10267409

PATIENT
  Sex: Female
  Weight: 77.18 kg

DRUGS (6)
  1. PRISTIQ [Suspect]
     Indication: HOT FLUSH
     Route: 048
     Dates: start: 20081001, end: 20090201
  2. PRISTIQ [Suspect]
     Indication: INSOMNIA
     Route: 048
     Dates: start: 20090201, end: 20090101
  3. PRISTIQ [Suspect]
     Dosage: 50 MG DAILY AND TAPERED
     Route: 048
     Dates: start: 20090101, end: 20090101
  4. PRISTIQ [Suspect]
     Route: 048
     Dates: start: 20090101, end: 20090701
  5. PRISTIQ [Suspect]
     Dosage: 50 MG EVERY FEW DAYS
     Route: 048
     Dates: start: 20090701, end: 20090718
  6. AMBIEN CR [Concomitant]

REACTIONS (4)
  - DRUG INEFFECTIVE [None]
  - MEMORY IMPAIRMENT [None]
  - MIGRAINE [None]
  - SOMNOLENCE [None]
